FAERS Safety Report 17466481 (Version 6)
Quarter: 2020Q4

REPORT INFORMATION
  Report Type: Report from Study
  Country: JP (occurrence: JP)
  Receive Date: 20200227
  Receipt Date: 20201216
  Transmission Date: 20210113
  Serious: Yes (Other)
  Sender: FDA-Public Use
  Company Number: JP-ASTELLAS-2019JP026551

PATIENT
  Age: 81 Year
  Sex: Male
  Weight: 62 kg

DRUGS (9)
  1. CYTARABINE OCFOSFATE [Concomitant]
     Active Substance: CYTARABINE OCFOSFATE
     Indication: ACUTE MYELOID LEUKAEMIA
     Dosage: 100 MG/DAY, UNKNOWN FREQ.
     Route: 048
  2. ASP2215 [Suspect]
     Active Substance: GILTERITINIB
     Indication: ACUTE MYELOID LEUKAEMIA REFRACTORY
     Route: 048
     Dates: start: 20191016, end: 20191023
  3. CYTARABINE OCFOSFATE [Concomitant]
     Active Substance: CYTARABINE OCFOSFATE
     Dosage: 300 MG/DAY, UNKNOWN FREQ.
     Route: 048
  4. ASP2215 [Suspect]
     Active Substance: GILTERITINIB
     Route: 048
     Dates: start: 20191024, end: 20200212
  5. ASP2215 [Suspect]
     Active Substance: GILTERITINIB
     Route: 048
     Dates: start: 20200221, end: 202005
  6. ASP2215 [Suspect]
     Active Substance: GILTERITINIB
     Route: 048
     Dates: start: 20200706
  7. INSULIN [Concomitant]
     Active Substance: INSULIN NOS
     Indication: PRODUCT USED FOR UNKNOWN INDICATION
     Dosage: UNK UNK, UNKNOWN FREQ.
     Route: 048
  8. CYTARABINE OCFOSFATE [Concomitant]
     Active Substance: CYTARABINE OCFOSFATE
     Dosage: UNK UNK, UNKNOWN FREQ.
     Route: 048
  9. SALAZOSULFAPYRIDINE [Concomitant]
     Active Substance: SULFASALAZINE
     Indication: PRODUCT USED FOR UNKNOWN INDICATION
     Dosage: UNK UNK, UNKNOWN FREQ.
     Route: 048

REACTIONS (6)
  - Bundle branch block right [Not Recovered/Not Resolved]
  - Electrocardiogram T wave inversion [Recovered/Resolved]
  - Neutropenia [Recovered/Resolved]
  - Rheumatoid arthritis [Recovered/Resolved]
  - Platelet count decreased [Recovered/Resolved]
  - Diarrhoea [Recovered/Resolved]

NARRATIVE: CASE EVENT DATE: 20191018
